FAERS Safety Report 7683614-5 (Version None)
Quarter: 2011Q3

REPORT INFORMATION
  Report Type: 
  Country: None (occurrence: None)
  Receive Date: 20110815
  Receipt Date: 20110809
  Transmission Date: 20111222
  Serious: Yes (Hospitalization, Other)
  Sender: FDA-Public Use
  Company Number: DE-AMGEN-DEUNI2011034155

PATIENT
  Age: 65 Year
  Sex: Female
  Weight: 64.5 kg

DRUGS (10)
  1. MCP [Concomitant]
     Indication: PREMEDICATION
     Dosage: 144 MG, UNK
     Route: 048
     Dates: start: 20110506, end: 20110507
  2. DOCETAXEL [Concomitant]
     Indication: BREAST CANCER
     Dosage: 171 MG, UNK
     Route: 042
  3. METOPROLOL TARTRATE [Concomitant]
     Indication: HYPERTENSION
     Dosage: 200 UNK, UNK
     Route: 048
  4. DREISAFER [Concomitant]
     Indication: ANAEMIA
     Dosage: 100 MG, UNK
     Route: 048
  5. PEGFILGRASTIM [Suspect]
     Dosage: 6 MG, UNK
     Route: 058
     Dates: start: 20110328, end: 20110509
  6. DEXAMETHASONE [Concomitant]
     Indication: PREMEDICATION
     Dosage: 16 MG, UNK
     Route: 048
     Dates: start: 20110504, end: 20110506
  7. PEGFILGRASTIM [Suspect]
     Indication: PROPHYLAXIS
     Dosage: 6 MG, UNK
     Route: 058
     Dates: start: 20110328, end: 20110509
  8. SIMVASTATIN [Concomitant]
     Indication: HYPERCHOLESTEROLAEMIA
     Dosage: 80 MG, UNK
     Route: 048
  9. FOSTER [Concomitant]
     Indication: DYSPNOEA
     Dosage: UNK
     Route: 048
  10. PANTOPRAZOLE [Concomitant]
     Indication: PREMEDICATION
     Dosage: 20 MG, UNK
     Route: 048
     Dates: start: 20110504

REACTIONS (6)
  - ATAXIA [None]
  - PARAESTHESIA [None]
  - COORDINATION ABNORMAL [None]
  - DYSGEUSIA [None]
  - ENCEPHALITIS [None]
  - TOXIC NEUROPATHY [None]
